FAERS Safety Report 11730455 (Version 1)
Quarter: 2015Q4

REPORT INFORMATION
  Report Type: Spontaneous
  Country: US (occurrence: US)
  Receive Date: 20151110
  Receipt Date: 20151110
  Transmission Date: 20160304
  Serious: Yes (Hospitalization)
  Sender: FDA-Public Use
  Company Number: US-ELI_LILLY_AND_COMPANY-US201109008813

PATIENT
  Sex: Female
  Weight: 90 kg

DRUGS (2)
  1. PREDNISONE. [Concomitant]
     Active Substance: PREDNISONE
  2. FORTEO [Suspect]
     Active Substance: TERIPARATIDE
     Indication: OSTEOPOROSIS
     Dosage: UNK

REACTIONS (23)
  - Confusional state [Unknown]
  - Blood glucose increased [Unknown]
  - Weight decreased [Unknown]
  - Tremor [Unknown]
  - Anxiety [Unknown]
  - Nervousness [Unknown]
  - Malaise [Unknown]
  - Asthma [Unknown]
  - Fear [Unknown]
  - Weight increased [Unknown]
  - Inflammation [Unknown]
  - Crying [Unknown]
  - Swelling [Unknown]
  - Fluid retention [Unknown]
  - Osteoporosis [Unknown]
  - Feeling jittery [Unknown]
  - Dyspnoea [Unknown]
  - Swelling face [Unknown]
  - Bone density decreased [Unknown]
  - Injection site mass [Unknown]
  - Insomnia [Unknown]
  - Asthenia [Unknown]
  - Injection site bruising [Unknown]
